FAERS Safety Report 7639182-7 (Version None)
Quarter: 2011Q3

REPORT INFORMATION
  Report Type: 
  Country: None (occurrence: None)
  Receive Date: 20110721
  Receipt Date: 20110712
  Transmission Date: 20111222
  Serious: Yes (Other)
  Sender: FDA-Public Use
  Company Number: IMP_05405_2011

PATIENT
  Age: 26 Year
  Sex: Male

DRUGS (6)
  1. QUETIAPINE [Concomitant]
  2. BUPROPION HCL [Suspect]
     Indication: BIPOLAR I DISORDER
     Dosage: (DF [TITRATION[), (300 MG QD)
  3. BUPROPION HCL [Suspect]
     Indication: OFF LABEL USE
     Dosage: (DF [TITRATION[), (300 MG QD)
  4. CLONAZEPAM [Concomitant]
  5. LITHIUM [Concomitant]
  6. OLANZAPINE [Concomitant]

REACTIONS (7)
  - PRESSURE OF SPEECH [None]
  - INSOMNIA [None]
  - MANIA [None]
  - HYPOMANIA [None]
  - DISTRACTIBILITY [None]
  - IRRITABILITY [None]
  - PSYCHOMOTOR HYPERACTIVITY [None]
